FAERS Safety Report 9443999 (Version 1)
Quarter: 2013Q3

REPORT INFORMATION
  Report Type: Spontaneous
  Country: CL (occurrence: CL)
  Receive Date: 20130807
  Receipt Date: 20130807
  Transmission Date: 20140515
  Serious: Yes (Other)
  Sender: FDA-Public Use
  Company Number: CL-009507513-2011SP041619

PATIENT
  Age: 36 Year
  Sex: Female
  Weight: 64 kg

DRUGS (4)
  1. NUVARING [Suspect]
     Indication: CONTRACEPTION
     Dosage: DELIVERS 0.120MG/0.015 MG, QM
     Route: 067
     Dates: start: 2010
  2. NUVARING [Suspect]
     Dosage: DELIVERS 0.120MG/0.015 MG, QM
     Route: 067
     Dates: start: 20110727, end: 20110818
  3. NUVARING [Suspect]
     Dosage: DELIVERS 0.120MG/0.015 MG, QM
     Route: 067
     Dates: start: 20110826, end: 2011
  4. NUVARING [Suspect]
     Dosage: DELIVERS 0.120MG/0.015 MG, QM
     Route: 067
     Dates: start: 20130701

REACTIONS (6)
  - Abortion spontaneous [Unknown]
  - Incorrect drug administration duration [Recovered/Resolved]
  - Inappropriate schedule of drug administration [Recovered/Resolved]
  - Incorrect drug administration duration [Not Recovered/Not Resolved]
  - Haemorrhage [Unknown]
  - Acne [Recovered/Resolved]
